FAERS Safety Report 4416938-5 (Version None)
Quarter: 2004Q3

REPORT INFORMATION
  Report Type: 
  Country: None (occurrence: None)
  Receive Date: 20040802
  Receipt Date: 20040721
  Transmission Date: 20050211
  Serious: Yes (Hospitalization)
  Sender: FDA-Public Use
  Company Number: HQWYE836422DEC03

PATIENT
  Age: 58 Year
  Sex: Male
  Weight: 96.25 kg

DRUGS (12)
  1. MYLOTARG [Suspect]
     Indication: ACUTE MYELOID LEUKAEMIA
     Dosage: 18 MG 1X PER 1 DAY, INTRVENOUS
     Route: 042
     Dates: start: 20030709, end: 20030709
  2. MYLOTARG [Suspect]
     Dosage: 18 MG 1X PER 1 DAY, INTRAVENOUS
     Route: 042
     Dates: start: 20030722, end: 20030722
  3. AVANDIA [Concomitant]
  4. SPORANOX [Concomitant]
  5. CIPRO (DIPROFLOXACIN HYDROCHLORIDE) [Concomitant]
  6. KEFLEX (CEFALEXIN HYDROCHLORIDE) [Concomitant]
  7. VALCYTE [Concomitant]
  8. FOLIC ACID [Concomitant]
  9. DIGOXIN [Concomitant]
  10. LOPRESSOR [Concomitant]
  11. POTASSIUM (POTASSIUM) [Concomitant]
  12. ALLOPURINOL [Concomitant]

REACTIONS (6)
  - BETA HAEMOLYTIC STREPTOCOCCAL INFECTION [None]
  - BILIRUBIN CONJUGATED INCREASED [None]
  - BLOOD BILIRUBIN INCREASED [None]
  - DISEASE PROGRESSION [None]
  - OEDEMA PERIPHERAL [None]
  - SEPSIS [None]
